FAERS Safety Report 6197681-1 (Version None)
Quarter: 2009Q2

REPORT INFORMATION
  Report Type: 
  Country: None (occurrence: None)
  Receive Date: 20090514
  Receipt Date: 20090507
  Transmission Date: 20091009
  Serious: Yes (Other)
  Sender: FDA-Public Use
  Company Number: AEUSA200900150

PATIENT
  Age: 49 Year
  Sex: Female
  Weight: 100 kg

DRUGS (6)
  1. IMMUNE GLOBULIN (HUMAN) [Suspect]
     Indication: HYPOGAMMAGLOBULINAEMIA
     Dosage: 40 GM;QM;IV
     Route: 042
     Dates: start: 20081217, end: 20090425
  2. HYDROCHLOROTHIAZIDE [Concomitant]
  3. XANAX [Concomitant]
  4. ACETAMINOPHEN [Concomitant]
  5. DIPHENHYDRAMINE HCL [Concomitant]
  6. PREDNISONE [Concomitant]

REACTIONS (6)
  - ARTHRALGIA [None]
  - MALAISE [None]
  - PAIN [None]
  - PETECHIAE [None]
  - PYREXIA [None]
  - SERUM SICKNESS [None]
